FAERS Safety Report 12497521 (Version 1)
Quarter: 2016Q2

REPORT INFORMATION
  Report Type: Spontaneous
  Country: CH (occurrence: CH)
  Receive Date: 20160625
  Receipt Date: 20160625
  Transmission Date: 20160815
  Serious: Yes (Other)
  Sender: FDA-Public Use
  Company Number: PHHY2016CH085989

PATIENT
  Age: 80 Year
  Sex: Female

DRUGS (3)
  1. CHOLESTYRAMINE. [Interacting]
     Active Substance: CHOLESTYRAMINE
     Indication: ENDOMETRIAL CANCER
     Route: 065
  2. LOPERAMIDE [Suspect]
     Active Substance: LOPERAMIDE
     Indication: ENDOMETRIAL CANCER
     Dosage: 30 MG, QD
     Route: 065
  3. LOPERAMIDE [Interacting]
     Active Substance: LOPERAMIDE
     Dosage: 40 MG, QD
     Route: 065

REACTIONS (5)
  - Overdose [Unknown]
  - Confusional state [Unknown]
  - Drug interaction [Unknown]
  - Delirium [Recovered/Resolved]
  - Somnolence [Recovered/Resolved]
